FAERS Safety Report 12235310 (Version 6)
Quarter: 2017Q2

REPORT INFORMATION
  Report Type: Spontaneous
  Country: US (occurrence: US)
  Receive Date: 20160404
  Receipt Date: 20170605
  Transmission Date: 20170830
  Serious: Yes (Hospitalization, Other)
  Sender: FDA-Public Use
  Company Number: US-009507513-1604USA000525

PATIENT
  Sex: Female
  Weight: 129.25 kg

DRUGS (2)
  1. NUVARING [Suspect]
     Active Substance: ETHINYL ESTRADIOL\ETONOGESTREL
     Dosage: UNK
     Route: 067
     Dates: start: 201007, end: 20140403
  2. NUVARING [Suspect]
     Active Substance: ETHINYL ESTRADIOL\ETONOGESTREL
     Indication: CONTRACEPTION
     Dosage: UNK
     Route: 067
     Dates: start: 201001, end: 2010

REACTIONS (12)
  - Peripheral swelling [Unknown]
  - Sinusitis [Unknown]
  - Dizziness [Unknown]
  - Pulmonary embolism [Unknown]
  - Pain [Unknown]
  - Cholelithiasis [Unknown]
  - Obesity [Unknown]
  - Nephrolithiasis [Unknown]
  - Pulmonary mass [Unknown]
  - Headache [Unknown]
  - Hepatic steatosis [Unknown]
  - Fatigue [Unknown]

NARRATIVE: CASE EVENT DATE: 2014
